FAERS Safety Report 23195421 (Version 1)
Quarter: 2023Q4

REPORT INFORMATION
  Report Type: Report from Study
  Country: NL (occurrence: NL)
  Receive Date: 20231117
  Receipt Date: 20231117
  Transmission Date: 20240110
  Serious: Yes (Other)
  Sender: FDA-Public Use
  Company Number: NL-AstraZeneca-2023A256535

PATIENT
  Age: 6 Month
  Sex: Male
  Weight: 10.1 kg

DRUGS (1)
  1. SYNAGIS [Suspect]
     Active Substance: PALIVIZUMAB
     Indication: Product used for unknown indication
     Dosage: MONTHLY
     Route: 030
     Dates: start: 20231011

REACTIONS (4)
  - Cardiac disorder [Unknown]
  - Nephrolithiasis [Not Recovered/Not Resolved]
  - Nasal congestion [Unknown]
  - Crying [Unknown]
